FAERS Safety Report 25416923 (Version 2)
Quarter: 2025Q3

REPORT INFORMATION
  Report Type: Report from Study
  Country: CA (occurrence: CA)
  Receive Date: 20250610
  Receipt Date: 20250815
  Transmission Date: 20251021
  Serious: Yes (Hospitalization, Other)
  Sender: TAKEDA
  Company Number: CA-TAKEDA-CA202003890

PATIENT
  Sex: Male

DRUGS (26)
  1. ICATIBANT [Suspect]
     Active Substance: ICATIBANT ACETATE
     Indication: Hereditary angioedema
  2. ICATIBANT [Suspect]
     Active Substance: ICATIBANT ACETATE
     Indication: Hereditary angioedema with C1 esterase inhibitor deficiency
  3. ICATIBANT [Suspect]
     Active Substance: ICATIBANT ACETATE
  4. ICATIBANT [Suspect]
     Active Substance: ICATIBANT ACETATE
  5. CITALOPRAM [Concomitant]
     Active Substance: CITALOPRAM
     Dosage: 40 MILLIGRAM, QD
  6. PLAQUENIL [Concomitant]
     Active Substance: HYDROXYCHLOROQUINE SULFATE
     Indication: Rheumatoid arthritis
  7. METHOTREXATE [Concomitant]
     Active Substance: METHOTREXATE
     Indication: Rheumatoid arthritis
  8. PROPRANOLOL HYDROCHLORIDE [Concomitant]
     Active Substance: PROPRANOLOL HYDROCHLORIDE
  9. GABAPENTIN [Concomitant]
     Active Substance: GABAPENTIN
     Dosage: 100 MILLIGRAM, TID
  10. FUROSEMIDE\POTASSIUM CHLORIDE [Concomitant]
     Active Substance: FUROSEMIDE\POTASSIUM CHLORIDE
  11. ZYLOPRIM [Concomitant]
     Active Substance: ALLOPURINOL
  12. METOPROLOL [Concomitant]
     Active Substance: METOPROLOL
  13. FOLIC ACID [Concomitant]
     Active Substance: FOLIC ACID
  14. SULFAMETHOXAZOLE\TRIMETHOPRIM [Concomitant]
     Active Substance: SULFAMETHOXAZOLE\TRIMETHOPRIM
  15. OLANZAPINE [Concomitant]
     Active Substance: OLANZAPINE
  16. LORAZEPAM [Concomitant]
     Active Substance: LORAZEPAM
  17. POTASSIUM [Concomitant]
     Active Substance: POTASSIUM
  18. COLCHICINE [Concomitant]
     Active Substance: COLCHICINE
  19. ELIQUIS [Concomitant]
     Active Substance: APIXABAN
  20. IBRUTINIB [Concomitant]
     Active Substance: IBRUTINIB
     Indication: Lymphoma
  21. VENLAFAXINE [Concomitant]
     Active Substance: VENLAFAXINE HYDROCHLORIDE
     Indication: Depression
     Dosage: 150 MILLIGRAM, QD
  22. WARFARIN [Concomitant]
     Active Substance: WARFARIN
     Dosage: 7 MILLIGRAM, QD
  23. DILANTIN [Concomitant]
     Active Substance: PHENYTOIN
     Dosage: 200 MILLIGRAM, BID
  24. HUMAN C1-ESTERASE INHIBITOR [Concomitant]
     Active Substance: HUMAN C1-ESTERASE INHIBITOR
  25. ALLOPURINOL [Concomitant]
     Active Substance: ALLOPURINOL
  26. LASIX [Concomitant]
     Active Substance: FUROSEMIDE

REACTIONS (9)
  - Upper limb fracture [Unknown]
  - Pelvic fracture [Unknown]
  - Coagulopathy [Unknown]
  - Gout [Unknown]
  - Hiatus hernia [Not Recovered/Not Resolved]
  - Paraesthesia oral [Unknown]
  - Pain in extremity [Unknown]
  - Abdominal pain [Not Recovered/Not Resolved]
  - Urinary tract infection [Unknown]
